FAERS Safety Report 23258451 (Version 5)
Quarter: 2024Q2

REPORT INFORMATION
  Report Type: Spontaneous
  Country: CA (occurrence: CA)
  Receive Date: 20231204
  Receipt Date: 20240508
  Transmission Date: 20240716
  Serious: No
  Sender: FDA-Public Use
  Company Number: CA-PFIZER INC-202300211916

PATIENT
  Age: 13 Year
  Sex: Male

DRUGS (1)
  1. ABRILADA [Suspect]
     Active Substance: ADALIMUMAB-AFZB
     Indication: Crohn^s disease
     Dosage: 160 MG AT WEEK 0, 80 MG AT WEEK 2 AND 40MG EVERY OTHER WEEK BEGINNING AT WEEK 4
     Route: 058
     Dates: start: 20230517

REACTIONS (3)
  - Off label use [Unknown]
  - Anxiety [Unknown]
  - Injection site pain [Not Recovered/Not Resolved]

NARRATIVE: CASE EVENT DATE: 20230101
